FAERS Safety Report 6596751-3 (Version None)
Quarter: 2010Q1

REPORT INFORMATION
  Report Type: 
  Country: None (occurrence: None)
  Receive Date: 20100223
  Receipt Date: 20100219
  Transmission Date: 20100710
  Serious: Yes (Hospitalization)
  Sender: FDA-Public Use
  Company Number: FR-MERCK-0912FRA00084

PATIENT
  Age: 78 Year
  Sex: Male

DRUGS (9)
  1. INVANZ [Suspect]
     Indication: URINARY TRACT INFECTION
     Route: 042
     Dates: start: 20090925, end: 20091003
  2. ESCITALOPRAM OXALATE [Concomitant]
     Route: 048
  3. ALFUZOSIN HYDROCHLORIDE [Concomitant]
     Route: 048
  4. BACLOFEN [Concomitant]
     Route: 048
  5. CLONAZEPAM [Concomitant]
     Route: 048
  6. VALSARTAN [Concomitant]
     Route: 048
  7. ACETAMINOPHEN [Concomitant]
     Route: 065
  8. FUROSEMIDE [Concomitant]
     Route: 048
  9. POLYETHYLENE GLYCOL 3350 AND POTASSIUM CHLORIDE AND SODIUM BICARBONATE [Concomitant]
     Route: 048

REACTIONS (3)
  - DELIRIUM [None]
  - HALLUCINATION [None]
  - VISUAL IMPAIRMENT [None]
